FAERS Safety Report 21453738 (Version 5)
Quarter: 2022Q4

REPORT INFORMATION
  Report Type: Report from Study
  Country: US (occurrence: US)
  Receive Date: 20221013
  Receipt Date: 20221101
  Transmission Date: 20230113
  Serious: Yes (Hospitalization, Other)
  Sender: FDA-Public Use
  Company Number: US-BRISTOL-MYERS SQUIBB COMPANY-2022-116592

PATIENT
  Age: 76 Year
  Sex: Male
  Weight: 77.11 kg

DRUGS (20)
  1. ELIQUIS [Suspect]
     Active Substance: APIXABAN
     Indication: Cerebrovascular accident prophylaxis
     Dosage: 5 MILLIGRAM, BID (BY MOUTH) (FROM 3 YEARS)
     Route: 048
  2. ELIQUIS [Suspect]
     Active Substance: APIXABAN
     Indication: Hypertension
  3. COREG [Suspect]
     Active Substance: CARVEDILOL
     Indication: Hypertension
     Route: 065
  4. COREG [Suspect]
     Active Substance: CARVEDILOL
     Dosage: 5 MILLIGRAM (FROM 3 YEARS)
     Route: 048
  5. LYRICA [Suspect]
     Active Substance: PREGABALIN
     Indication: Hypertension
     Dosage: FROM 3 YEARS
     Route: 065
  6. LYRICA [Suspect]
     Active Substance: PREGABALIN
     Indication: Anticoagulant therapy
  7. DEMADEX [Suspect]
     Active Substance: TORSEMIDE
     Indication: Hypertension
     Dosage: 20 MILLIGRAM (FROM 3 YEARS)
     Route: 065
  8. DESYREL [Suspect]
     Active Substance: TRAZODONE HYDROCHLORIDE
     Indication: Hypertension
     Dosage: 50 MILLIGRAM, HS (FROM 3 YEARS) AT BEDTIME
     Route: 065
  9. TYLENOL [Concomitant]
     Active Substance: ACETAMINOPHEN
     Indication: Product used for unknown indication
     Route: 065
  10. HUMIRA [Concomitant]
     Active Substance: ADALIMUMAB
     Indication: Product used for unknown indication
     Route: 065
  11. AMIODARONE [Concomitant]
     Active Substance: AMIODARONE
     Indication: Product used for unknown indication
     Route: 065
  12. CALCITONIN [Concomitant]
     Active Substance: CALCITONIN
     Indication: Product used for unknown indication
     Route: 065
  13. LEVOTHYROXINE [Concomitant]
     Active Substance: LEVOTHYROXINE
     Indication: Product used for unknown indication
     Route: 065
  14. METHOCARBAMOL [Concomitant]
     Active Substance: METHOCARBAMOL
     Indication: Product used for unknown indication
     Route: 065
  15. METOPROLOL [Concomitant]
     Active Substance: METOPROLOL
     Indication: Product used for unknown indication
     Route: 065
  16. HYDROCHLOROTHIAZIDE [Concomitant]
     Active Substance: HYDROCHLOROTHIAZIDE
     Indication: Product used for unknown indication
     Dosage: DAILY
     Route: 065
  17. ABREVA [Concomitant]
     Active Substance: DOCOSANOL
     Indication: Product used for unknown indication
     Dosage: NUMBER OF SEPARATE DOSAGES: 1, UNK, PRN (INHALANT AS NECESSARY)
     Route: 065
  18. OXYCODONE [Concomitant]
     Active Substance: OXYCODONE
     Indication: Product used for unknown indication
     Route: 065
  19. ZOLOFT [Concomitant]
     Active Substance: SERTRALINE HYDROCHLORIDE
     Indication: Mental disorder
     Dosage: 3 DOSAGE FORM, QD (FOR 5-6 YEARS), THREE TABLETS BY MOUTH EVERY MORNING
     Route: 048
  20. ZOLOFT [Concomitant]
     Active Substance: SERTRALINE HYDROCHLORIDE
     Dosage: 2 DOSAGE FORM, AM (2 TABLET BY MOUTH EVERY MORNING)
     Route: 048

REACTIONS (12)
  - Spinal fracture [Unknown]
  - Fall [Unknown]
  - Hypothyroidism [Unknown]
  - Hernia perforation [Not Recovered/Not Resolved]
  - Vascular injury [Unknown]
  - Weight decreased [Unknown]
  - Diarrhoea [Unknown]
  - Blood pressure fluctuation [Unknown]
  - Headache [Unknown]
  - Quality of life decreased [Unknown]
  - Therapeutic product effect delayed [Unknown]
  - Dyspepsia [Unknown]

NARRATIVE: CASE EVENT DATE: 20210701
